FAERS Safety Report 9637295 (Version 2)
Quarter: 2013Q4

REPORT INFORMATION
  Report Type: Spontaneous
  Country: US (occurrence: US)
  Receive Date: 20131022
  Receipt Date: 20131125
  Transmission Date: 20140711
  Serious: Yes (Hospitalization)
  Sender: FDA-Public Use
  Company Number: US-BIOGENIDEC-2013BI100720

PATIENT
  Age: 37 Year
  Sex: Female
  Weight: 96 kg

DRUGS (8)
  1. TYSABRI [Suspect]
     Indication: MULTIPLE SCLEROSIS
     Route: 042
     Dates: start: 200909, end: 20130609
  2. AMBIEN [Concomitant]
     Indication: INSOMNIA
     Route: 048
  3. AMRIX [Concomitant]
     Route: 048
  4. ARICEPT [Concomitant]
     Route: 048
  5. HYDROCODONE/APAP [Concomitant]
     Indication: PAIN
     Route: 048
  6. LEXAPRO [Concomitant]
     Indication: DEPRESSION
     Route: 048
  7. VITAMIN B12 [Concomitant]
     Route: 048
  8. VITAMIN D [Concomitant]
     Route: 048

REACTIONS (2)
  - Pancreatitis [Unknown]
  - Rash [Unknown]
